FAERS Safety Report 9999533 (Version 1)
Quarter: 2014Q1

REPORT INFORMATION
  Report Type: Report from Study
  Country: DE (occurrence: DE)
  Receive Date: 20140312
  Receipt Date: 20140312
  Transmission Date: 20141002
  Serious: Yes (Hospitalization)
  Sender: FDA-Public Use
  Company Number: DE-JNJFOC-20140302760

PATIENT
  Age: 69 Year
  Sex: Female
  Weight: 60 kg

DRUGS (3)
  1. SIMPONI [Suspect]
     Indication: RHEUMATOID ARTHRITIS
     Route: 058
     Dates: end: 20140202
  2. METHOTREXATE [Concomitant]
     Indication: RHEUMATOID ARTHRITIS
     Route: 065
  3. ALENDRONATE [Concomitant]
     Indication: OSTEOPOROSIS POSTMENOPAUSAL
     Route: 065

REACTIONS (10)
  - Sepsis [Recovered/Resolved]
  - Circulatory collapse [Recovered/Resolved]
  - Renal failure [Recovered/Resolved]
  - Bronchopneumonia [Recovered/Resolved]
  - Pleural effusion [Recovered/Resolved]
  - Splenic haematoma [Recovered/Resolved]
  - Splenic infarction [Recovered/Resolved]
  - Renal cyst [Recovered/Resolved]
  - Uterine haemorrhage [Recovered/Resolved]
  - Cerebral infarction [Recovered/Resolved]
